FAERS Safety Report 16978540 (Version 1)
Quarter: 2019Q4

REPORT INFORMATION
  Report Type: Spontaneous
  Country: DE (occurrence: DE)
  Receive Date: 20191031
  Receipt Date: 20191031
  Transmission Date: 20200122
  Serious: Yes (Other)
  Sender: FDA-Public Use
  Company Number: DE-ROCHE-2455806

PATIENT
  Sex: Female

DRUGS (1)
  1. AVASTIN [Suspect]
     Active Substance: BEVACIZUMAB
     Indication: BLOCH-SULZBERGER SYNDROME
     Route: 050

REACTIONS (3)
  - Intentional product use issue [Unknown]
  - Off label use [Unknown]
  - Necrotising colitis [Unknown]
